FAERS Safety Report 9705695 (Version 3)
Quarter: 2015Q3

REPORT INFORMATION
  Report Type: Spontaneous
  Country: US (occurrence: US)
  Receive Date: 20131122
  Receipt Date: 20150803
  Transmission Date: 20151125
  Serious: No
  Sender: FDA-Public Use
  Company Number: US-GILEAD-2008-0017033

PATIENT
  Age: 45 Year
  Sex: Female

DRUGS (8)
  1. SPIRONOLACTONE. [Concomitant]
     Active Substance: SPIRONOLACTONE
  2. HYDROXYZINE [Concomitant]
     Active Substance: HYDROXYZINE\HYDROXYZINE HYDROCHLORIDE
  3. FUROSEMIDE. [Concomitant]
     Active Substance: FUROSEMIDE
  4. HYDROCODONE [Concomitant]
     Active Substance: HYDROCODONE
  5. LETAIRIS [Suspect]
     Active Substance: AMBRISENTAN
     Dates: start: 2007, end: 200806
  6. POTASSIUM [Concomitant]
     Active Substance: POTASSIUM
  7. LACTULOSE. [Concomitant]
     Active Substance: LACTULOSE
  8. LETAIRIS [Suspect]
     Active Substance: AMBRISENTAN
     Dates: start: 200806

REACTIONS (3)
  - Product quality issue [None]
  - Product taste abnormal [None]
  - Vaginal haemorrhage [None]

NARRATIVE: CASE EVENT DATE: 200805
